FAERS Safety Report 5773430-3 (Version None)
Quarter: 2008Q2

REPORT INFORMATION
  Report Type: 
  Country: None (occurrence: None)
  Receive Date: 20080616
  Receipt Date: 20080606
  Transmission Date: 20081010
  Serious: Yes (Other)
  Sender: FDA-Public Use
  Company Number: US-SOLVAY-00208002535

PATIENT
  Sex: Male

DRUGS (2)
  1. ANDROGEL [Suspect]
     Indication: DRUG USE FOR UNKNOWN INDICATION
     Dosage: DAILY DOSE: 10 GRAM(S)
     Route: 062
  2. STEROID [Interacting]
     Indication: PAIN
     Dosage: DAILY DOSE:  UNKNOWN
     Route: 065

REACTIONS (3)
  - BLOOD TESTOSTERONE DECREASED [None]
  - DRUG INTERACTION [None]
  - INTERVERTEBRAL DISC PROTRUSION [None]
